FAERS Safety Report 15517471 (Version 2)
Quarter: 2018Q4

REPORT INFORMATION
  Report Type: Spontaneous
  Country: DE (occurrence: DE)
  Receive Date: 20181017
  Receipt Date: 20181105
  Transmission Date: 20190205
  Serious: Yes (Life-Threatening, Other)
  Sender: FDA-Public Use
  Company Number: DE-PFIZER INC-2018385898

PATIENT
  Age: 32 Year
  Sex: Female
  Weight: 100 kg

DRUGS (6)
  1. XELJANZ [Suspect]
     Active Substance: TOFACITINIB CITRATE
     Indication: COLITIS ULCERATIVE
     Dosage: 10 MG, 2X/DAY
     Dates: start: 20180303
  2. LANTUS [Suspect]
     Active Substance: INSULIN GLARGINE
     Indication: TYPE 2 DIABETES MELLITUS
     Dosage: 32 IU, 2X/DAY
     Route: 058
  3. XELJANZ [Suspect]
     Active Substance: TOFACITINIB CITRATE
     Dosage: 5 MG, 2X/DAY
  4. LANTUS [Suspect]
     Active Substance: INSULIN GLARGINE
     Dosage: 13 IU, 2X/DAY
  5. SALOFALK [MESALAZINE] [Concomitant]
     Indication: COLITIS ULCERATIVE
     Dosage: 3 G, DAILY
  6. PREDNISOLONE. [Concomitant]
     Active Substance: PREDNISOLONE
     Indication: COLITIS ULCERATIVE
     Dosage: 10 MG, DAILY
     Dates: start: 20180201, end: 20180310

REACTIONS (1)
  - Shock hypoglycaemic [Recovered/Resolved]

NARRATIVE: CASE EVENT DATE: 201803
